FAERS Safety Report 9395697 (Version 1)
Quarter: 2013Q3

REPORT INFORMATION
  Report Type: Spontaneous
  Country: US (occurrence: US)
  Receive Date: 20130711
  Receipt Date: 20130711
  Transmission Date: 20140515
  Serious: Yes (Other)
  Sender: FDA-Public Use
  Company Number: US-TEVA-418121USA

PATIENT
  Age: 63 Year
  Sex: Male

DRUGS (2)
  1. CICLOSPORIN [Suspect]
     Indication: PSORIASIS
     Route: 065
  2. CLOBETASOL [Suspect]
     Indication: PSORIASIS
     Dosage: 0.05%
     Route: 061

REACTIONS (2)
  - Adrenal insufficiency [Unknown]
  - Tinea capitis [Recovered/Resolved]
